FAERS Safety Report 5613913-X (Version None)
Quarter: 2008Q1

REPORT INFORMATION
  Report Type: 
  Country: None (occurrence: None)
  Receive Date: 20080205
  Receipt Date: 20080125
  Transmission Date: 20080703
  Serious: Yes (Other)
  Sender: FDA-Public Use
  Company Number: GB-JNJFOC-20080107272

PATIENT
  Age: 73 Year
  Sex: Male

DRUGS (3)
  1. REMINYL XR [Suspect]
  2. REMINYL XR [Suspect]
  3. REMINYL XR [Suspect]
     Indication: DEMENTIA

REACTIONS (1)
  - BLOOD GLUCOSE DECREASED [None]
